FAERS Safety Report 7935614-5 (Version None)
Quarter: 2011Q4

REPORT INFORMATION
  Report Type: 
  Country: None (occurrence: None)
  Receive Date: 20111123
  Receipt Date: 20111111
  Transmission Date: 20120403
  Serious: Yes (Other)
  Sender: FDA-Public Use
  Company Number: US-ELI_LILLY_AND_COMPANY-US201106002132

PATIENT
  Sex: Female
  Weight: 78.73 kg

DRUGS (11)
  1. CALCIUM [Concomitant]
     Dosage: UNK UNK, QD
     Route: 048
  2. CYMBALTA [Suspect]
     Indication: DEPRESSION
     Dosage: 60 MG, QD
     Route: 048
     Dates: start: 20110309, end: 20110501
  3. BONIVA [Concomitant]
     Dosage: 150 MG, MONTHLY (1/M)
  4. VITAMIN TAB [Concomitant]
     Dosage: UNK, QD
     Route: 048
  5. DILTIAZEM HCL [Concomitant]
     Indication: HYPERTENSION
     Dosage: 180 MG, QD
     Route: 048
  6. HYDROCHLOROTHIAZIDE [Concomitant]
     Indication: HYPERTENSION
     Dosage: 25 MG, QD
     Route: 048
  7. EXTRA STRENGTH TYLENOL [Concomitant]
     Route: 048
  8. FISH OIL [Concomitant]
  9. VYTORIN [Concomitant]
     Dosage: UNK UNK, QD
     Route: 048
  10. GLUCOSAMINE [Concomitant]
     Dosage: 500 MG, UNK
     Route: 048
  11. POTASSIUM [Concomitant]
     Dosage: 10 MEQ, QD
     Route: 048

REACTIONS (11)
  - DRUG WITHDRAWAL SYNDROME [None]
  - PLATELET FUNCTION TEST ABNORMAL [None]
  - DIZZINESS [None]
  - BLOOD PRESSURE INCREASED [None]
  - VOMITING [None]
  - SKIN DISORDER [None]
  - CONTUSION [None]
  - BILIARY COLIC [None]
  - MALIGNANT MELANOMA IN SITU [None]
  - SKIN HAEMORRHAGE [None]
  - NAUSEA [None]
